FAERS Safety Report 15583277 (Version 3)
Quarter: 2018Q4

REPORT INFORMATION
  Report Type: Report from Study
  Country: AU (occurrence: AU)
  Receive Date: 20181105
  Receipt Date: 20181224
  Transmission Date: 20190205
  Serious: Yes (Hospitalization)
  Sender: FDA-Public Use
  Company Number: AU-ROCHE-2205039

PATIENT
  Age: 48 Year
  Sex: Female

DRUGS (11)
  1. RITUXIMAB. [Suspect]
     Active Substance: RITUXIMAB
     Indication: ANTI-NEUTROPHIL CYTOPLASMIC ANTIBODY POSITIVE VASCULITIS
     Dosage: DATE OF MOST RECENT DOSE OF STUDY PRIOR TO SERIOUS ADVERSE EVENT: 14/JUN /2017
     Route: 042
     Dates: start: 20151020, end: 20170614
  2. GLICLAZIDE [Concomitant]
     Active Substance: GLICLAZIDE
     Route: 048
     Dates: start: 20180129
  3. AMOXYCILLIN [Concomitant]
     Active Substance: AMOXICILLIN
     Dosage: 875/125 MG
     Route: 065
  4. FESS [Concomitant]
  5. PANTOPRAZOLE [Concomitant]
     Active Substance: PANTOPRAZOLE
     Route: 048
     Dates: start: 20151118
  6. PANTOPRAZOLE [Concomitant]
     Active Substance: PANTOPRAZOLE
     Route: 048
     Dates: start: 20170713
  7. PREDNISOLONE. [Concomitant]
     Active Substance: PREDNISOLONE
     Route: 048
     Dates: start: 20170713
  8. NASONEX [Concomitant]
     Active Substance: MOMETASONE FUROATE
  9. BACTRIM DS [Concomitant]
     Active Substance: SULFAMETHOXAZOLE\TRIMETHOPRIM
     Dosage: 1/2 TABLET (BACTRIM DS)
     Route: 048
     Dates: start: 20130508
  10. DULOXETINE. [Concomitant]
     Active Substance: DULOXETINE
     Route: 048
     Dates: start: 2012
  11. GLICLAZIDE [Concomitant]
     Active Substance: GLICLAZIDE
     Route: 048
     Dates: start: 20160104

REACTIONS (3)
  - Upper airway obstruction [Recovered/Resolved]
  - Influenza [Recovered/Resolved]
  - Laryngitis viral [Recovered/Resolved]

NARRATIVE: CASE EVENT DATE: 20181023
